FAERS Safety Report 8470559 (Version 6)
Quarter: 2012Q4

REPORT INFORMATION
  Report Type: 
  Country: DK (occurrence: JP)
  Receive Date: 20120321
  Receipt Date: 20120927
  Transmission Date: 20130627
  Serious: Yes (Other)
  Sender: FDA-Public Use
  Company Number: JP-FRI-1000029225

PATIENT
  Age: 42 Year
  Sex: Female
  Weight: 45 kg

DRUGS (8)
  1. LEXAPRO [Suspect]
     Indication: DEPRESSION
     Dosage: 10 mg
     Route: 048
     Dates: start: 20120216, end: 20120229
  2. LEXAPRO [Suspect]
     Dosage: 20 mg
     Route: 048
     Dates: start: 20120301, end: 20120308
  3. FLUVOXAMINE MALEATE [Concomitant]
     Indication: DEPRESSION
     Dosage: 150 mg
     Route: 048
     Dates: start: 20120116, end: 20120326
  4. EVAMYL [Concomitant]
     Indication: INSOMNIA
     Dosage: 2 mg
     Route: 048
     Dates: start: 20110613
  5. BROTIZOLAM [Concomitant]
     Indication: INSOMNIA
     Dosage: 0.25 mg
     Route: 048
     Dates: start: 20091116
  6. ESTAZOLAM [Concomitant]
     Indication: INSOMNIA
     Dosage: 2 mg
     Route: 048
     Dates: start: 20091022
  7. HORIZON [Concomitant]
     Indication: ANXIETY
     Dosage: 15 mg
     Route: 048
     Dates: start: 20111116
  8. RILYFTER [Concomitant]
     Indication: INSOMNIA
     Dosage: 10 mg
     Route: 048
     Dates: start: 20110714, end: 20120315

REACTIONS (11)
  - Convulsion [Unknown]
  - Facial spasm [Unknown]
  - Nausea [Recovering/Resolving]
  - Vomiting [None]
  - Musculoskeletal stiffness [None]
  - Tremor [None]
  - Fear [None]
  - Excessive eye blinking [None]
  - Dystonia [None]
  - Tremor [None]
  - Tardive dyskinesia [None]
